FAERS Safety Report 11756183 (Version 2)
Quarter: 2015Q4

REPORT INFORMATION
  Report Type: Report from Study
  Country: NL (occurrence: NL)
  Receive Date: 20151119
  Receipt Date: 20151229
  Transmission Date: 20160304
  Serious: Yes (Life-Threatening, Other)
  Sender: FDA-Public Use
  Company Number: NL-009507513-1511NLD006718

PATIENT
  Sex: Female

DRUGS (4)
  1. DOXORUBICIN [Suspect]
     Active Substance: DOXORUBICIN
     Indication: CHEMOTHERAPY
     Dosage: 30 MG/M2 OF CAELYX OR 50MG/M2 OF ADRYAMYCIN, Q4 WEEKS FOR SIX CYCLES
     Route: 042
  2. ROACTEMRA [Suspect]
     Active Substance: TOCILIZUMAB
     Indication: INTERLEUKIN THERAPY
     Dosage: AT THE HIGHEST DOSE 8 MG/KG, DAY 1 Q4 WEEKS DURING THE FIRST THREE CYCLES OF CHEMOTHERAPY
     Route: 042
  3. CARBOSIN [Suspect]
     Active Substance: CARBOPLATIN
     Indication: CHEMOTHERAPY
     Dosage: Q4 WEEKS, FOR SIX CYCLES
     Route: 042
  4. PEGINTRON [Suspect]
     Active Substance: PEGINTERFERON ALFA-2B
     Indication: IMMUNE ENHANCEMENT THERAPY
     Dosage: 1 MICROGRAM PER KILOGRAM, DAY 1 Q4 WEEKS
     Route: 058

REACTIONS (13)
  - Neutropenia [Unknown]
  - Diarrhoea [Unknown]
  - White blood cell count abnormal [Unknown]
  - Vomiting [Unknown]
  - Decreased appetite [Unknown]
  - Neuralgia [Unknown]
  - Fatigue [Unknown]
  - Nausea [Unknown]
  - Large intestine perforation [Unknown]
  - Febrile neutropenia [Unknown]
  - Alanine aminotransferase abnormal [Unknown]
  - Infection [Unknown]
  - Dysgeusia [Unknown]
